FAERS Safety Report 9159428 (Version 1)
Quarter: 2013Q1

REPORT INFORMATION
  Report Type: Spontaneous
  Country: US (occurrence: US)
  Receive Date: 20130313
  Receipt Date: 20130313
  Transmission Date: 20140127
  Serious: No
  Sender: FDA-Public Use
  Company Number: PHEH2013US004310

PATIENT
  Age: 63 Year
  Sex: Male

DRUGS (2)
  1. TASIGNA [Suspect]
     Indication: CHRONIC MYELOID LEUKAEMIA
     Dosage: 300 MG, BID
     Route: 048
     Dates: start: 201301, end: 20130218
  2. ANDROGEL [Concomitant]
     Dosage: 25 MG, WEEKLY
     Dates: start: 201208

REACTIONS (3)
  - Facial pain [Recovering/Resolving]
  - Pain of skin [Recovering/Resolving]
  - Flushing [Recovering/Resolving]
